FAERS Safety Report 9185000 (Version 4)
Quarter: 2014Q3

REPORT INFORMATION
  Report Type: Report from Study
  Country: US (occurrence: US)
  Receive Date: 20130325
  Receipt Date: 20140704
  Transmission Date: 20150326
  Serious: Yes (Hospitalization, Other)
  Sender: FDA-Public Use
  Company Number: US-ALEXION-A201300529

PATIENT

DRUGS (1)
  1. SOLIRIS [Suspect]
     Active Substance: ECULIZUMAB
     Indication: HAEMOLYTIC URAEMIC SYNDROME
     Dosage: 600 MG, UNK
     Route: 042

REACTIONS (5)
  - Colostomy [Unknown]
  - Unevaluable event [Unknown]
  - Nasopharyngitis [Unknown]
  - Haemorrhage [Unknown]
  - Staphylococcal infection [Recovered/Resolved with Sequelae]
